FAERS Safety Report 21252662 (Version 1)
Quarter: 2022Q3

REPORT INFORMATION
  Report Type: Spontaneous
  Country: US (occurrence: US)
  Receive Date: 20220825
  Receipt Date: 20220825
  Transmission Date: 20221026
  Serious: Yes (Death, Life-Threatening, Hospitalization, Other)
  Sender: FDA-Public Use
  Company Number: None

PATIENT
  Age: 67 Year
  Sex: Male

DRUGS (3)
  1. PREDNISOLONE [Suspect]
     Active Substance: PREDNISOLONE
     Indication: Sinusitis bacterial
     Dosage: UNK
     Route: 048
  2. METHYLPREDNISOLONE [Suspect]
     Active Substance: METHYLPREDNISOLONE
     Indication: Vasculitis
     Dosage: UNK, TOTAL (ONE-TIME DOSE)
     Route: 042
  3. LEVOFLOXACIN [Suspect]
     Active Substance: LEVOFLOXACIN
     Indication: Sinusitis bacterial
     Dosage: UNK
     Route: 065

REACTIONS (6)
  - Disseminated mucormycosis [Fatal]
  - Haemodynamic instability [Fatal]
  - Acute kidney injury [Fatal]
  - Encephalopathy [Fatal]
  - Sepsis [Unknown]
  - Drug ineffective [Unknown]
